FAERS Safety Report 19530693 (Version 2)
Quarter: 2021Q4

REPORT INFORMATION
  Report Type: Spontaneous
  Country: JP (occurrence: JP)
  Receive Date: 20210714
  Receipt Date: 20211223
  Transmission Date: 20220303
  Serious: Yes (Hospitalization)
  Sender: FDA-Public Use
  Company Number: JP-DSJP-DSJ-2021-120980

PATIENT
  Age: 83 Year
  Sex: Male

DRUGS (2)
  1. DENOSUMAB [Suspect]
     Active Substance: DENOSUMAB
     Indication: Metastases to bone
     Dosage: UNK
     Route: 065
  2. DOCETAXEL [Concomitant]
     Active Substance: DOCETAXEL
     Indication: Prostate cancer
     Dosage: UNK
     Route: 065

REACTIONS (3)
  - Cellulitis [Recovering/Resolving]
  - Sepsis [Recovering/Resolving]
  - Osteonecrosis of jaw [Recovering/Resolving]
